FAERS Safety Report 9796231 (Version 5)
Quarter: 2018Q1

REPORT INFORMATION
  Report Type: Spontaneous
  Country: US (occurrence: US)
  Receive Date: 20140103
  Receipt Date: 20180118
  Transmission Date: 20180509
  Serious: Yes (Hospitalization)
  Sender: FDA-Public Use
  Company Number: US-BAYER-2013-158758

PATIENT
  Age: 28 Year
  Sex: Female
  Weight: 57.14 kg

DRUGS (8)
  1. GARAMYCIN [Concomitant]
     Active Substance: GENTAMICIN SULFATE
     Route: 061
  2. MIRENA [Suspect]
     Active Substance: LEVONORGESTREL
     Indication: CONTRACEPTION
     Dosage: 20 MCG/24HR, CONT
     Route: 015
     Dates: start: 20070809, end: 20090603
  3. MIRALAX [Concomitant]
     Active Substance: POLYETHYLENE GLYCOL 3350
  4. BUPROPION. [Concomitant]
     Active Substance: BUPROPION
     Indication: DEPRESSION
     Dosage: 100 MG, BID
  5. JOLIVETTE [Concomitant]
     Active Substance: NORETHINDRONE
  6. MIRENA [Suspect]
     Active Substance: LEVONORGESTREL
     Indication: CONTRACEPTION
  7. ERYTHROMYCIN ETHYLSUCCINATE. [Concomitant]
     Active Substance: ERYTHROMYCIN ETHYLSUCCINATE
  8. FLAGYL [Concomitant]
     Active Substance: METRONIDAZOLE\METRONIDAZOLE HYDROCHLORIDE

REACTIONS (14)
  - Emotional distress [None]
  - Deformity [None]
  - Device dislocation [None]
  - Procedural pain [None]
  - Injury [None]
  - Anxiety [None]
  - Abdominal pain lower [None]
  - Uterine perforation [None]
  - Pregnancy with contraceptive device [None]
  - General physical health deterioration [None]
  - Drug ineffective [None]
  - Pain [None]
  - Menorrhagia [Recovered/Resolved]
  - Anhedonia [None]

NARRATIVE: CASE EVENT DATE: 200708
